FAERS Safety Report 5874684-5 (Version None)
Quarter: 2008Q3

REPORT INFORMATION
  Report Type: 
  Country: None (occurrence: None)
  Receive Date: 20080909
  Receipt Date: 20080828
  Transmission Date: 20090109
  Serious: Yes (Other)
  Sender: FDA-Public Use
  Company Number: FR-JNJFOC-20080806257

PATIENT
  Age: 73 Year
  Sex: Male

DRUGS (6)
  1. TAVANIC [Suspect]
     Indication: SINUSITIS
     Route: 048
  2. ARICEPT [Concomitant]
     Indication: DEMENTIA ALZHEIMER'S TYPE
     Route: 048
  3. LIPANTHYL [Concomitant]
     Indication: HYPERCHOLESTEROLAEMIA
     Route: 048
  4. ZONDAR [Concomitant]
     Indication: OSTEOARTHRITIS
     Route: 048
  5. EXOMUC [Concomitant]
     Indication: SINUSITIS
     Dosage: 3 U
     Route: 048
  6. HUMER [Concomitant]
     Indication: SINUSITIS
     Route: 055

REACTIONS (2)
  - INTENTIONAL DRUG MISUSE [None]
  - TENDONITIS [None]
